FAERS Safety Report 4994582-9 (Version None)
Quarter: 2006Q2

REPORT INFORMATION
  Report Type: 
  Country: None (occurrence: None)
  Receive Date: 20060505
  Receipt Date: 20050630
  Transmission Date: 20061013
  Serious: Yes (Hospitalization, Other)
  Sender: FDA-Public Use
  Company Number: US-MERCK-0507USA00147

PATIENT
  Age: 56 Year
  Sex: Female
  Weight: 75 kg

DRUGS (17)
  1. VIOXX [Suspect]
     Indication: RHEUMATOID ARTHRITIS
     Route: 048
     Dates: start: 20000510, end: 20040901
  2. VIOXX [Suspect]
     Indication: PAIN
     Route: 048
     Dates: start: 20000510, end: 20040901
  3. COZAAR [Concomitant]
     Route: 048
  4. PLAVIX [Concomitant]
     Route: 048
  5. ASPIRIN [Concomitant]
     Route: 065
  6. TEQUIN [Concomitant]
     Route: 065
  7. HYDRODIURIL [Concomitant]
     Route: 048
  8. ALLEGRA [Concomitant]
     Route: 065
  9. LEVOTHROID [Concomitant]
     Route: 065
  10. PREVACID [Concomitant]
     Route: 065
  11. ASCORBIC ACID [Concomitant]
     Route: 065
  12. VITAMIN E [Concomitant]
     Route: 065
  13. FLEXERIL [Concomitant]
     Route: 065
  14. ULTRAM [Concomitant]
     Route: 065
  15. LORTAB [Concomitant]
     Route: 065
  16. DILANTIN [Concomitant]
     Route: 065
  17. AMBIEN [Concomitant]
     Route: 065

REACTIONS (30)
  - ANAEMIA [None]
  - BACK PAIN [None]
  - CAROTID ARTERY STENOSIS [None]
  - CAROTID BRUIT [None]
  - CATHETER RELATED INFECTION [None]
  - CEREBROVASCULAR ACCIDENT [None]
  - CONVULSION [None]
  - COUGH [None]
  - DEHYDRATION [None]
  - DEMENTIA [None]
  - DYSPNOEA [None]
  - ENCEPHALOPATHY [None]
  - EPILEPSY [None]
  - FAILURE TO THRIVE [None]
  - FALL [None]
  - HEADACHE [None]
  - HYPOTENSION [None]
  - LUNG DISORDER [None]
  - MASTOIDITIS [None]
  - MYOCARDIAL INFARCTION [None]
  - NAUSEA [None]
  - NECK PAIN [None]
  - OROPHARYNGEAL NEOPLASM [None]
  - OTORRHOEA [None]
  - PAIN [None]
  - PELVIC FRACTURE [None]
  - PHARYNGOLARYNGEAL PAIN [None]
  - ROAD TRAFFIC ACCIDENT [None]
  - SYNCOPE [None]
  - VOMITING [None]
